FAERS Safety Report 4560180-4 (Version None)
Quarter: 2005Q1

REPORT INFORMATION
  Report Type: 
  Country: None (occurrence: None)
  Receive Date: 20050120
  Receipt Date: 20050120
  Transmission Date: 20050727
  Serious: Yes (Death)
  Sender: FDA-Public Use
  Company Number: None

PATIENT
  Age: 66 Year
  Sex: Male
  Weight: 67.3138 kg

DRUGS (5)
  1. THALIDOMIDE [Suspect]
     Indication: MESOTHELIOMA
     Dosage: PO DOSE INCREASING -START 200 MG Q HS INC 50 MG Q 7 DAYS TO 400 MG. TOLD 1-18-05 TO DEC TO 300 MG
     Route: 048
     Dates: start: 20041223
  2. GLYBURIDE [Concomitant]
  3. OXYCONTIN [Concomitant]
  4. ROXICET 10/30 [Concomitant]
  5. OXYCODONE HCL [Concomitant]

REACTIONS (1)
  - THROMBOSIS [None]
